FAERS Safety Report 7677415-1 (Version None)
Quarter: 2011Q3

REPORT INFORMATION
  Report Type: 
  Country: None (occurrence: None)
  Receive Date: 20110811
  Receipt Date: 20100730
  Transmission Date: 20111222
  Serious: No
  Sender: FDA-Public Use
  Company Number: US-BRISTOL-MYERS SQUIBB COMPANY-15218225

PATIENT
  Age: 62 Year
  Sex: Male

DRUGS (2)
  1. REYATAZ [Suspect]
  2. EPZICOM [Suspect]

REACTIONS (1)
  - NEPHROLITHIASIS [None]
